FAERS Safety Report 16456314 (Version 1)
Quarter: 2019Q2

REPORT INFORMATION
  Report Type: Spontaneous
  Country: JP (occurrence: JP)
  Receive Date: 20190620
  Receipt Date: 20190620
  Transmission Date: 20190711
  Serious: Yes (Other)
  Sender: FDA-Public Use
  Company Number: JP-PFIZER INC-2019250359

PATIENT
  Age: 75 Year
  Sex: Male

DRUGS (1)
  1. HALCION [Suspect]
     Active Substance: TRIAZOLAM
     Indication: INSOMNIA
     Dosage: 5-6 TABLETS (AT LEAST 4 TABLETS AND 2 MORE TABLETS OCCASIONALLY) A NIGHT
     Route: 048

REACTIONS (6)
  - Intentional overdose [Unknown]
  - Rib fracture [Unknown]
  - Asthenia [Unknown]
  - Cerebral infarction [Unknown]
  - Fall [Unknown]
  - Dysstasia [Unknown]
